FAERS Safety Report 15429502 (Version 1)
Quarter: 2018Q3

REPORT INFORMATION
  Report Type: Spontaneous
  Country: US (occurrence: US)
  Receive Date: 20180926
  Receipt Date: 20180926
  Transmission Date: 20181010
  Serious: Yes (Hospitalization, Other)
  Sender: FDA-Public Use
  Company Number: US-MYLANLABS-2018M1069293

PATIENT
  Age: 10 Year
  Sex: Male

DRUGS (2)
  1. COLCHICINE. [Suspect]
     Active Substance: COLCHICINE
     Indication: PRODUCT USED FOR UNKNOWN INDICATION
     Dosage: THE BOY INGESTED 8 TABLETS OF 0.6MG
     Route: 048
  2. FUROSEMIDE. [Suspect]
     Active Substance: FUROSEMIDE
     Indication: PRODUCT USED FOR UNKNOWN INDICATION
     Dosage: 240 MG, THE BOY INGESTED 6 TABLETS OF 40MG
     Route: 048

REACTIONS (3)
  - Electrolyte imbalance [Recovered/Resolved]
  - Hypokalaemia [Recovered/Resolved]
  - Accidental exposure to product by child [Recovered/Resolved]
